FAERS Safety Report 21170828 (Version 1)
Quarter: 2022Q3

REPORT INFORMATION
  Report Type: Spontaneous
  Country: US (occurrence: US)
  Receive Date: 20220804
  Receipt Date: 20220804
  Transmission Date: 20221027
  Serious: No
  Sender: FDA-Public Use
  Company Number: US-ELI_LILLY_AND_COMPANY-US202208000815

PATIENT
  Age: 71 Year
  Sex: Female

DRUGS (5)
  1. TRULICITY [Suspect]
     Active Substance: DULAGLUTIDE
     Indication: Glycosylated haemoglobin increased
     Dosage: 0.75 MG, UNKNOWN
     Route: 065
     Dates: start: 20220717
  2. TRULICITY [Suspect]
     Active Substance: DULAGLUTIDE
     Dosage: 0.75 MG, UNKNOWN
     Route: 065
  3. ROSUVASTATIN [Concomitant]
     Active Substance: ROSUVASTATIN
     Indication: Glycosylated haemoglobin increased
     Dosage: 10 MG, UNKNOWN
  4. ELIQUIS [Concomitant]
     Active Substance: APIXABAN
     Indication: Blood disorder
  5. VITAMIN D3 [Concomitant]
     Active Substance: CHOLECALCIFEROL
     Indication: Product used for unknown indication
     Dosage: 15 MG, UNKNOWN

REACTIONS (3)
  - Oral herpes [Unknown]
  - Flatulence [Unknown]
  - Eructation [Unknown]

NARRATIVE: CASE EVENT DATE: 20220701
